FAERS Safety Report 16703012 (Version 8)
Quarter: 2020Q3

REPORT INFORMATION
  Report Type: Report from Study
  Country: FR (occurrence: FR)
  Receive Date: 20190814
  Receipt Date: 20200710
  Transmission Date: 20201102
  Serious: Yes (Hospitalization)
  Sender: FDA-Public Use
  Company Number: FR-PFIZER INC-2019339824

PATIENT
  Age: 75 Year
  Sex: Male
  Weight: 70 kg

DRUGS (13)
  1. AVELUMAB [Suspect]
     Active Substance: AVELUMAB
     Indication: RENAL CELL CARCINOMA
     Dosage: 930 MG, EVERY 2 WEEKS
     Route: 042
     Dates: start: 20170612, end: 20170710
  2. LASILIX [FUROSEMIDE] [Concomitant]
     Active Substance: FUROSEMIDE
     Indication: HYPERTENSION
     Dosage: UNK
     Dates: start: 2017
  3. MAG 2 [MAGNESIUM CARBONATE] [Concomitant]
     Active Substance: MAGNESIUM CARBONATE
     Indication: PROPHYLAXIS
  4. FUMAFER [Concomitant]
     Active Substance: FERROUS FUMARATE
     Indication: NUTRITIONAL SUPPLEMENTATION
     Dosage: UNK
  5. KARDEGIC [Concomitant]
     Active Substance: ASPIRIN DL-LYSINE
     Indication: THROMBOSIS PROPHYLAXIS
     Dosage: UNK
     Dates: start: 2002
  6. ZYLORIC [Concomitant]
     Active Substance: ALLOPURINOL
     Indication: HYPERURICAEMIA
     Dosage: UNK
     Dates: start: 2017
  7. ONBREZ [Concomitant]
     Active Substance: INDACATEROL
     Indication: CHRONIC OBSTRUCTIVE PULMONARY DISEASE
     Dosage: UNK
     Dates: start: 2017
  8. GALVUS [Concomitant]
     Active Substance: VILDAGLIPTIN
     Indication: TYPE 2 DIABETES MELLITUS
     Dosage: UNK
     Dates: start: 2017
  9. DIFFU K [Concomitant]
     Active Substance: POTASSIUM CHLORIDE
     Indication: PROPHYLAXIS
     Dosage: UNK
     Dates: start: 20190708
  10. FUMAFER [Concomitant]
     Active Substance: FERROUS FUMARATE
     Indication: PROPHYLAXIS
  11. INLYTA [Suspect]
     Active Substance: AXITINIB
     Dosage: 3 MG, TWICE DAILY CONTINUOUS
     Route: 048
     Dates: start: 20170707, end: 20190801
  12. MAG 2 [MAGNESIUM CARBONATE] [Concomitant]
     Active Substance: MAGNESIUM CARBONATE
     Indication: NUTRITIONAL SUPPLEMENTATION
     Dosage: UNK
     Dates: start: 20190603
  13. INLYTA [Suspect]
     Active Substance: AXITINIB
     Indication: RENAL CELL CARCINOMA
     Dosage: 5 MG, TWICE DAILY CONTINUOUS
     Route: 048
     Dates: start: 20170612, end: 20170706

REACTIONS (1)
  - General physical health deterioration [Recovered/Resolved]

NARRATIVE: CASE EVENT DATE: 20190804
